FAERS Safety Report 7816840-2 (Version None)
Quarter: 2011Q4

REPORT INFORMATION
  Report Type: 
  Country: None (occurrence: None)
  Receive Date: 20111017
  Receipt Date: 20111007
  Transmission Date: 20120403
  Serious: Yes (Hospitalization)
  Sender: FDA-Public Use
  Company Number: JP-SANOFI-AVENTIS-2011SA056161

PATIENT
  Age: 78 Year
  Sex: Female
  Weight: 40 kg

DRUGS (12)
  1. RASBURICASE [Suspect]
     Route: 042
     Dates: start: 20110628, end: 20110629
  2. CYTARABINE [Suspect]
     Indication: CHEMOTHERAPY
     Dosage: DAY 1-5/1 WEEK
     Route: 042
     Dates: start: 20110628, end: 20110702
  3. LASIX [Concomitant]
     Route: 048
  4. ACECOL [Concomitant]
     Route: 048
  5. NOVANTRONE [Suspect]
     Indication: CHEMOTHERAPY
     Dosage: DAY 1-3/1 WEEK
     Route: 042
     Dates: start: 20110628, end: 20110702
  6. ALL OTHER THERAPEUTIC PRODUCTS [Concomitant]
     Dosage: DOSE:16000 UNIT(S)
     Route: 042
     Dates: end: 20110630
  7. ZOSYN [Concomitant]
     Route: 042
  8. ETOPOSIDE [Suspect]
     Indication: CHEMOTHERAPY
     Dosage: DAY 1-5/1WEEK
     Route: 042
     Dates: start: 20110628, end: 20110702
  9. GOODMIN [Concomitant]
     Route: 048
  10. ASPARA POTASSIUM [Concomitant]
     Route: 048
  11. RABEPRAZOLE SODIUM [Concomitant]
     Route: 048
  12. LEVOFLOXACIN [Concomitant]
     Route: 048

REACTIONS (1)
  - LEUKOPENIA [None]
